FAERS Safety Report 4276605-8 (Version None)
Quarter: 2004Q1

REPORT INFORMATION
  Report Type: 
  Country: None (occurrence: None)
  Receive Date: 20040120
  Receipt Date: 20040109
  Transmission Date: 20041129
  Serious: Yes (Death)
  Sender: FDA-Public Use
  Company Number: 23100188

PATIENT
  Age: 63 Year
  Sex: Male

DRUGS (2)
  1. ARGATROBAN [Suspect]
     Indication: HEPARIN-INDUCED THROMBOCYTOPENIA
     Dosage: 350 MCG CONT IV
     Route: 042
  2. ARGATROBAN [Suspect]
     Indication: HEPARIN-INDUCED THROMBOCYTOPENIA
     Dosage: 300 MCG CONT IV
     Route: 042

REACTIONS (6)
  - COAGULATION TIME PROLONGED [None]
  - HAEMORRHAGE [None]
  - MEDICAL DEVICE COMPLICATION [None]
  - OPERATIVE HAEMORRHAGE [None]
  - OVERDOSE [None]
  - THROMBOSIS [None]
